FAERS Safety Report 21856962 (Version 2)
Quarter: 2023Q1

REPORT INFORMATION
  Report Type: Spontaneous
  Country: US (occurrence: US)
  Receive Date: 20230113
  Receipt Date: 20230118
  Transmission Date: 20230417
  Serious: Yes (Death, Other)
  Sender: FDA-Public Use
  Company Number: US-009507513-2301USA003856

PATIENT
  Age: 60 Year
  Sex: Female

DRUGS (3)
  1. BELSOMRA [Suspect]
     Active Substance: SUVOREXANT
     Dosage: ROUTE OF ADMINISTARTION: INGESTION
  2. BACLOFEN [Suspect]
     Active Substance: BACLOFEN
     Dosage: ROUTE OF ADMINISTARTION: INGESTION
  3. HYDROXYZINE [Suspect]
     Active Substance: HYDROXYZINE HYDROCHLORIDE
     Dosage: ROUTE OF ADMINISTARTION: INGESTION

REACTIONS (3)
  - Suspected suicide [Fatal]
  - Cardiac arrest [Unknown]
  - Respiratory arrest [Unknown]
